FAERS Safety Report 15789447 (Version 1)
Quarter: 2019Q1

REPORT INFORMATION
  Report Type: Spontaneous
  Country: US (occurrence: US)
  Receive Date: 20190104
  Receipt Date: 20190104
  Transmission Date: 20190417
  Serious: Yes (Other)
  Sender: FDA-Public Use
  Company Number: US-TEVA-2018-US-993828

PATIENT
  Sex: Female

DRUGS (1)
  1. LORAZEPAM TABLETS ACTAVIS [Suspect]
     Active Substance: LORAZEPAM
     Indication: SYSTEMIC LUPUS ERYTHEMATOSUS

REACTIONS (8)
  - Oral discomfort [Unknown]
  - Tongue discomfort [Unknown]
  - Dyspnoea [Unknown]
  - Product odour abnormal [Unknown]
  - Abdominal discomfort [Recovered/Resolved]
  - Chest pain [Unknown]
  - Nausea [Unknown]
  - Systemic lupus erythematosus [Unknown]
